FAERS Safety Report 7394019-9 (Version None)
Quarter: 2011Q2

REPORT INFORMATION
  Report Type: 
  Country: None (occurrence: None)
  Receive Date: 20110405
  Receipt Date: 20101115
  Transmission Date: 20111010
  Serious: Yes (Hospitalization)
  Sender: FDA-Public Use
  Company Number: US-AMGEN-USASP2010005317

PATIENT
  Sex: Female

DRUGS (6)
  1. VINCRISTINE                        /00078802/ [Concomitant]
  2. NEULASTA [Suspect]
     Indication: CHEMOTHERAPY
     Dosage: UNK
  3. DOXORUBICIN [Concomitant]
  4. RITUXIMAB [Concomitant]
  5. CYCLOPHOSPHAMIDE [Concomitant]
  6. PREDNISONE [Concomitant]

REACTIONS (1)
  - FEBRILE NEUTROPENIA [None]
